FAERS Safety Report 9066880 (Version 1)
Quarter: 2013Q1

REPORT INFORMATION
  Report Type: Spontaneous
  Country: US (occurrence: US)
  Receive Date: 20130214
  Receipt Date: 20130214
  Transmission Date: 20140127
  Serious: Yes (Hospitalization, Other)
  Sender: FDA-Public Use
  Company Number: US-MEDICIS-2013P1001770

PATIENT
  Age: 74 Year
  Sex: Female
  Weight: 58.97 kg

DRUGS (7)
  1. TAMBOCOR [Suspect]
     Indication: ATRIAL FIBRILLATION
     Dates: start: 2000
  2. FLECAINIDE [Suspect]
     Indication: ATRIAL FIBRILLATION
     Route: 048
  3. AZOR [Concomitant]
  4. SYNTHROID [Concomitant]
  5. LIVALO [Concomitant]
     Indication: BLOOD CHOLESTEROL INCREASED
  6. CELEBREX [Concomitant]
  7. OTHER UNSPECIFIED MEDICATIONS [Concomitant]

REACTIONS (7)
  - Drug ineffective [Recovered/Resolved]
  - Thyroid cancer [Unknown]
  - Colon cancer [Unknown]
  - Enteritis [Unknown]
  - Breast cancer [Unknown]
  - Therapeutic response unexpected with drug substitution [Recovered/Resolved]
  - Parathyroid tumour benign [Not Recovered/Not Resolved]
